FAERS Safety Report 7744672-2 (Version None)
Quarter: 2011Q3

REPORT INFORMATION
  Report Type: 
  Country: None (occurrence: None)
  Receive Date: 20110912
  Receipt Date: 20110902
  Transmission Date: 20111222
  Serious: Yes (Other)
  Sender: FDA-Public Use
  Company Number: PHEH2011US01013

PATIENT
  Sex: Female
  Weight: 58 kg

DRUGS (6)
  1. SOLU-MEDROL [Concomitant]
     Dosage: 1000 MG, QD
     Route: 042
     Dates: start: 20110605, end: 20110708
  2. TAMSULOSIN HCL [Concomitant]
     Indication: URINARY RETENTION
     Dosage: 0.4 MG, QD
  3. ZOLPIDEM [Concomitant]
     Indication: INSOMNIA
     Dosage: 10 MG, QD
     Route: 048
  4. SERTRALINE HYDROCHLORIDE [Concomitant]
     Indication: DEPRESSION
     Dosage: 100 MG, QD
     Route: 048
  5. GILENYA [Suspect]
     Indication: RELAPSING-REMITTING MULTIPLE SCLEROSIS
     Dosage: 0.5 MG, QD
     Route: 048
     Dates: start: 20110118, end: 20110805
  6. SENOKOT                                 /UNK/ [Concomitant]
     Indication: CONSTIPATION
     Dosage: 2 DF, UNK
     Route: 048

REACTIONS (8)
  - VISION BLURRED [None]
  - EYE MOVEMENT DISORDER [None]
  - VISUAL IMPAIRMENT [None]
  - CRANIAL NERVE DISORDER [None]
  - OPTIC ATROPHY [None]
  - OPTIC NEURITIS [None]
  - BLINDNESS UNILATERAL [None]
  - VISUAL ACUITY REDUCED [None]
